FAERS Safety Report 21569011 (Version 1)
Quarter: 2022Q4

REPORT INFORMATION
  Report Type: Report from Study
  Country: US (occurrence: US)
  Receive Date: 20221108
  Receipt Date: 20221108
  Transmission Date: 20230113
  Serious: Yes (Hospitalization, Other)
  Sender: FDA-Public Use
  Company Number: US-SUN PHARMACEUTICAL INDUSTRIES LTD-2022R1-361296

PATIENT
  Sex: Female

DRUGS (1)
  1. CLOZAPINE [Suspect]
     Active Substance: CLOZAPINE
     Indication: Schizoaffective disorder
     Dosage: 500 MILLIGRAM, DAILY
     Route: 048
     Dates: start: 1994

REACTIONS (5)
  - Psychotic disorder [Unknown]
  - Abnormal behaviour [Unknown]
  - Affective disorder [Unknown]
  - Arthralgia [Unknown]
  - Treatment noncompliance [Unknown]
